FAERS Safety Report 23463763 (Version 2)
Quarter: 2024Q1

REPORT INFORMATION
  Report Type: Report from Study
  Country: US (occurrence: US)
  Receive Date: 20240201
  Receipt Date: 20240228
  Transmission Date: 20240409
  Serious: Yes (Hospitalization)
  Sender: FDA-Public Use
  Company Number: US-TAKEDA-2024TUS008919

PATIENT
  Sex: Male

DRUGS (2)
  1. MARIBAVIR [Suspect]
     Active Substance: MARIBAVIR
     Indication: Cytomegalovirus infection
     Dosage: 400 MILLIGRAM
     Route: 048
     Dates: start: 20240126
  2. MARIBAVIR [Suspect]
     Active Substance: MARIBAVIR
     Dosage: 400 MILLIGRAM
     Route: 048
     Dates: start: 20240131

REACTIONS (3)
  - Hospitalisation [Unknown]
  - Incorrect dose administered [Unknown]
  - No adverse event [Unknown]
